FAERS Safety Report 20343725 (Version 7)
Quarter: 2024Q2

REPORT INFORMATION
  Report Type: Other
  Country: JP (occurrence: JP)
  Receive Date: 20220118
  Receipt Date: 20240530
  Transmission Date: 20240715
  Serious: Yes (Other)
  Sender: FDA-Public Use
  Company Number: JP-CHUGAI-2022000539

PATIENT
  Age: 86 Year
  Sex: Female
  Weight: 37 kg

DRUGS (8)
  1. ENSPRYNG [Suspect]
     Active Substance: SATRALIZUMAB-MWGE
     Indication: Neuromyelitis optica spectrum disorder
     Dosage: 120 MILLIGRAM
     Route: 058
     Dates: start: 20210617, end: 20210617
  2. ENSPRYNG [Suspect]
     Active Substance: SATRALIZUMAB-MWGE
     Dosage: 120 MILLIGRAM, ONCE/2WEEKS
     Route: 058
     Dates: start: 20210805, end: 20210902
  3. ENSPRYNG [Suspect]
     Active Substance: SATRALIZUMAB-MWGE
     Dosage: 120 MILLIGRAM, ONCE/4WEEKS
     Route: 058
     Dates: start: 20210930, end: 20211202
  4. ENSPRYNG [Suspect]
     Active Substance: SATRALIZUMAB-MWGE
     Route: 058
     Dates: start: 20220106
  5. PREDNISOLONE [Suspect]
     Active Substance: PREDNISOLONE
     Indication: Neuromyelitis optica spectrum disorder
     Dosage: 4MG/DAY
     Route: 048
     Dates: end: 20211217
  6. PREDNISOLONE [Suspect]
     Active Substance: PREDNISOLONE
     Dosage: 1MG/DAY
     Route: 048
     Dates: start: 20211218
  7. PREDONINE [Concomitant]
     Active Substance: PREDNISOLONE
     Indication: Neuromyelitis optica spectrum disorder
     Dosage: 5MG/DAY
     Route: 048
     Dates: start: 20210617
  8. PREDNISOLONE [Concomitant]
     Active Substance: PREDNISOLONE
     Indication: Neuromyelitis optica spectrum disorder
     Dosage: 4MG/DAY
     Route: 048

REACTIONS (6)
  - Urinary retention [Recovered/Resolved]
  - Decubitus ulcer [Recovered/Resolved]
  - Hand dermatitis [Recovering/Resolving]
  - Seborrhoeic dermatitis [Recovered/Resolved]
  - Productive cough [Not Recovered/Not Resolved]
  - Herpes zoster [Recovered/Resolved]

NARRATIVE: CASE EVENT DATE: 20210621
